FAERS Safety Report 6379313-2 (Version None)
Quarter: 2009Q3

REPORT INFORMATION
  Report Type: 
  Country: None (occurrence: None)
  Receive Date: 20090923
  Receipt Date: 20090923
  Transmission Date: 20100115
  Serious: No
  Sender: FDA-Public Use
  Company Number: None

PATIENT
  Age: 75 Year
  Sex: Male
  Weight: 66 kg

DRUGS (10)
  1. OXYCODONE [Suspect]
     Indication: PAIN
     Dosage: 5MG GT Q4 PRN
     Dates: start: 20090528, end: 20090529
  2. HEPARIN [Concomitant]
  3. ACYCLOVIR [Concomitant]
  4. ASPIRIN [Concomitant]
  5. ANCEF [Concomitant]
  6. FOLIC ACID [Concomitant]
  7. INSULIN [Concomitant]
  8. LORAZEPAM [Concomitant]
  9. METOPROLOL [Concomitant]
  10. AMIODARONE HCL [Concomitant]

REACTIONS (2)
  - DEPRESSED LEVEL OF CONSCIOUSNESS [None]
  - UNRESPONSIVE TO STIMULI [None]
